FAERS Safety Report 23149278 (Version 1)
Quarter: 2023Q4

REPORT INFORMATION
  Report Type: Spontaneous
  Country: US (occurrence: US)
  Receive Date: 20231106
  Receipt Date: 20231106
  Transmission Date: 20240109
  Serious: No
  Sender: FDA-Public Use
  Company Number: US-RECKITT BENCKISER HEALTHCARE INT LIMITED-RB-090612-2023

PATIENT

DRUGS (2)
  1. MUCINEX [Suspect]
     Active Substance: GUAIFENESIN
     Indication: Productive cough
     Dosage: UNK
     Route: 048
  2. MUCINEX [Suspect]
     Active Substance: GUAIFENESIN
     Indication: Respiratory tract congestion

REACTIONS (2)
  - Drug effective for unapproved indication [Unknown]
  - Wrong technique in product usage process [Unknown]
